FAERS Safety Report 26207598 (Version 1)
Quarter: 2025Q4

REPORT INFORMATION
  Report Type: Spontaneous
  Country: US (occurrence: US)
  Receive Date: 20251229
  Receipt Date: 20251229
  Transmission Date: 20260118
  Serious: Yes (Hospitalization)
  Sender: MYLAN
  Company Number: US-MYLANLABS-2025M1108546

PATIENT
  Age: 8 Decade
  Sex: Male

DRUGS (2)
  1. DAPTOMYCIN [Suspect]
     Active Substance: DAPTOMYCIN
     Indication: Staphylococcal bacteraemia
     Dosage: UNK
  2. CEFTAROLINE [Concomitant]
     Active Substance: CEFTAROLINE
     Indication: Staphylococcal bacteraemia
     Dosage: UNK

REACTIONS (8)
  - Sepsis [Unknown]
  - Eosinophilic pneumonia [Recovered/Resolved]
  - Condition aggravated [Unknown]
  - Respiratory failure [Unknown]
  - Pulmonary oedema [Unknown]
  - Endocarditis [Unknown]
  - Hypervolaemia [Unknown]
  - Polyuria [Unknown]
